FAERS Safety Report 20771180 (Version 1)
Quarter: 2022Q2

REPORT INFORMATION
  Report Type: Other
  Country: US (occurrence: None)
  Receive Date: 20220429
  Receipt Date: 20220429
  Transmission Date: 20220721
  Serious: Yes (Other)
  Sender: FDA-Public Use
  Company Number: US-ROCHE-3057345

PATIENT
  Age: 76 Year
  Sex: Male

DRUGS (1)
  1. ESBRIET [Suspect]
     Active Substance: PIRFENIDONE
     Indication: Idiopathic pulmonary fibrosis
     Dosage: TAKE 1 TAB 3 TIMES FOR 1 WEEK, 2 TABS 3 TIMES DAILY FOR A WEEK, 3 TABS 3 TIMES DAILY?MAINTENANCE DOS
     Route: 048
     Dates: start: 20220304

REACTIONS (3)
  - Nausea [Not Recovered/Not Resolved]
  - Pneumonia [Unknown]
  - Cough [Recovered/Resolved]

NARRATIVE: CASE EVENT DATE: 20220411
